FAERS Safety Report 12371612 (Version 2)
Quarter: 2016Q2

REPORT INFORMATION
  Report Type: Report from Study
  Country: US (occurrence: US)
  Receive Date: 20160516
  Receipt Date: 20160630
  Transmission Date: 20160815
  Serious: Yes (Other)
  Sender: FDA-Public Use
  Company Number: PHEH2015US007815

PATIENT
  Sex: Female
  Weight: 59.41 kg

DRUGS (6)
  1. IBUPROFEN. [Concomitant]
     Active Substance: IBUPROFEN
     Indication: PRODUCT USED FOR UNKNOWN INDICATION
     Route: 065
  2. GILENYA [Suspect]
     Active Substance: FINGOLIMOD HYDROCHLORIDE
     Indication: MULTIPLE SCLEROSIS
     Dosage: 0.5 MG, QD
     Route: 048
     Dates: start: 20140207
  3. TYLENOL WITH CODEINE [Concomitant]
     Active Substance: ACETAMINOPHEN\CODEINE PHOSPHATE
     Indication: PRODUCT USED FOR UNKNOWN INDICATION
     Route: 065
  4. ZOFRAN [Concomitant]
     Active Substance: ONDANSETRON HYDROCHLORIDE
     Indication: PRODUCT USED FOR UNKNOWN INDICATION
     Route: 065
  5. NITROGLYCERIN. [Concomitant]
     Active Substance: NITROGLYCERIN
     Indication: PRODUCT USED FOR UNKNOWN INDICATION
     Route: 065
  6. TOPROL XL [Concomitant]
     Active Substance: METOPROLOL SUCCINATE
     Indication: PRODUCT USED FOR UNKNOWN INDICATION
     Dosage: 25 MG, QD
     Route: 065

REACTIONS (30)
  - Carotid artery aneurysm [Unknown]
  - Nocturia [Unknown]
  - Coordination abnormal [Unknown]
  - Arthralgia [Unknown]
  - Palpitations [Unknown]
  - Dyskinesia [Unknown]
  - Temperature intolerance [Unknown]
  - Neurogenic bladder [Unknown]
  - Balance disorder [Unknown]
  - Anal incontinence [Unknown]
  - Sleep disorder [Unknown]
  - Hypertonic bladder [Unknown]
  - Pollakiuria [Unknown]
  - Fine motor skill dysfunction [Unknown]
  - Vision blurred [Unknown]
  - Urinary tract infection [Unknown]
  - Headache [Unknown]
  - Swelling [Unknown]
  - Seasonal allergy [Unknown]
  - Paraesthesia [Unknown]
  - Eye pain [Unknown]
  - Paralysis [Unknown]
  - Diplopia [Unknown]
  - Dysphagia [Unknown]
  - Micturition urgency [Unknown]
  - Musculoskeletal stiffness [Unknown]
  - Amnesia [Unknown]
  - Dizziness [Unknown]
  - Blindness [Unknown]
  - Muscle spasms [Unknown]

NARRATIVE: CASE EVENT DATE: 2015
